FAERS Safety Report 7319543-6 (Version None)
Quarter: 2011Q1

REPORT INFORMATION
  Report Type: 
  Country: None (occurrence: None)
  Receive Date: 20110228
  Receipt Date: 20100510
  Transmission Date: 20110831
  Serious: No
  Sender: FDA-Public Use
  Company Number: A0858931A

PATIENT
  Age: 56 Year
  Sex: Male

DRUGS (3)
  1. PRAVASTATIN [Concomitant]
  2. ZETIA [Concomitant]
  3. LAMICTAL [Suspect]
     Dosage: 25MG PER DAY
     Route: 048
     Dates: start: 20100401

REACTIONS (4)
  - RASH PAPULAR [None]
  - EXFOLIATIVE RASH [None]
  - DERMATITIS ACNEIFORM [None]
  - RASH [None]
